FAERS Safety Report 16684200 (Version 4)
Quarter: 2023Q4

REPORT INFORMATION
  Report Type: Report from Study
  Country: DE (occurrence: DE)
  Receive Date: 20190808
  Receipt Date: 20231227
  Transmission Date: 20240110
  Serious: Yes (Hospitalization, Other)
  Sender: FDA-Public Use
  Company Number: DE-SA-2019SA207012

PATIENT
  Age: 72 Year
  Sex: Male
  Weight: 78.7 kg

DRUGS (12)
  1. TAFAMIDIS MEGLUMINE [Suspect]
     Active Substance: TAFAMIDIS MEGLUMINE
     Indication: Amyloidosis
     Dosage: 20 MG, 1X/DAY
     Route: 048
     Dates: start: 20171018, end: 20200724
  2. AMIODARONE HYDROCHLORIDE [Suspect]
     Active Substance: AMIODARONE HYDROCHLORIDE
     Indication: Atrial tachycardia
     Dosage: 200 MG, 1X/DAY
     Route: 048
     Dates: start: 20190622
  3. EPLERENONE [Concomitant]
     Active Substance: EPLERENONE
     Indication: Cardiac failure
     Dosage: UNK
     Dates: start: 201408
  4. ATORVASTATIN [Concomitant]
     Active Substance: ATORVASTATIN
     Indication: Hyperlipidaemia
     Dosage: UNK
     Dates: start: 20180125
  5. PANTOPRAZOLE [Concomitant]
     Active Substance: PANTOPRAZOLE
     Indication: Gastritis prophylaxis
     Dosage: UNK
     Dates: start: 20180205
  6. DIETARY SUPPLEMENT [Concomitant]
     Active Substance: DIETARY SUPPLEMENT
     Indication: Amyloidosis
     Dosage: UNK
     Dates: start: 201503
  7. PHENPROCOUMON [Concomitant]
     Active Substance: PHENPROCOUMON
     Indication: Thrombosis prophylaxis
     Dosage: UNK
     Dates: start: 20181113
  8. ALLOPURINOL [Concomitant]
     Active Substance: ALLOPURINOL
     Indication: Hyperuricaemia
     Dosage: UNK
     Dates: start: 20190427
  9. CANDESARTAN [Concomitant]
     Active Substance: CANDESARTAN
     Indication: Hypertension
     Dosage: UNK
     Dates: start: 20190427
  10. TORSEMIDE [Concomitant]
     Active Substance: TORSEMIDE
     Indication: Oedema peripheral
     Dosage: UNK
     Dates: start: 20190405
  11. XIPAMIDE [Concomitant]
     Active Substance: XIPAMIDE
     Indication: Oedema peripheral
     Dosage: UNK
     Dates: start: 20190427
  12. SOTALOL [Concomitant]
     Active Substance: SOTALOL
     Indication: Ventricular tachycardia
     Dosage: UNK
     Dates: start: 20190405, end: 20190621

REACTIONS (3)
  - Electrolyte imbalance [Recovered/Resolved]
  - Ventricular tachycardia [Recovered/Resolved]
  - Syncope [Recovered/Resolved with Sequelae]

NARRATIVE: CASE EVENT DATE: 20190701
